FAERS Safety Report 8285551-4 (Version None)
Quarter: 2012Q2

REPORT INFORMATION
  Report Type: 
  Country: None (occurrence: None)
  Receive Date: 20120413
  Receipt Date: 20120220
  Transmission Date: 20120825
  Serious: No
  Sender: FDA-Public Use
  Company Number: US-ASTRAZENECA-2012SE11561

PATIENT
  Age: 61 Year
  Sex: Female
  Weight: 53.5 kg

DRUGS (4)
  1. NEXIUM [Suspect]
     Indication: GASTROOESOPHAGEAL REFLUX DISEASE
     Route: 048
     Dates: start: 20120101
  2. CALCIUM CARBONATE [Concomitant]
  3. NEXIUM [Suspect]
     Indication: HIATUS HERNIA
     Route: 048
     Dates: start: 20120101
  4. VITAMIN D [Concomitant]

REACTIONS (4)
  - BLOOD CALCIUM DECREASED [None]
  - GASTROOESOPHAGEAL REFLUX DISEASE [None]
  - ABDOMINAL DISCOMFORT [None]
  - DRUG PRESCRIBING ERROR [None]
